FAERS Safety Report 17847687 (Version 3)
Quarter: 2020Q3

REPORT INFORMATION
  Report Type: Spontaneous
  Country: US (occurrence: US)
  Receive Date: 20200601
  Receipt Date: 20200914
  Transmission Date: 20201103
  Serious: Yes (Other)
  Sender: FDA-Public Use
  Company Number: US-LEXICON PHARMACEUTICALS, INC-20-1606-00407

PATIENT
  Age: 60 Year
  Sex: Male

DRUGS (3)
  1. XERMELO [Suspect]
     Active Substance: TELOTRISTAT ETHYL
     Route: 048
     Dates: start: 20200506
  2. XERMELO [Suspect]
     Active Substance: TELOTRISTAT ETHYL
     Indication: CARCINOID TUMOUR OF THE SMALL BOWEL
     Dates: start: 20200406
  3. XERMELO [Suspect]
     Active Substance: TELOTRISTAT ETHYL
     Dosage: HE SOMETIMES TAKES TWO TABLETS INSTEAD OF 1 TABLET X 3 DAILY
     Route: 048

REACTIONS (2)
  - Surgery [Unknown]
  - Treatment noncompliance [Not Recovered/Not Resolved]
